FAERS Safety Report 16873975 (Version 1)
Quarter: 2019Q4

REPORT INFORMATION
  Report Type: Spontaneous
  Country: US (occurrence: US)
  Receive Date: 20191001
  Receipt Date: 20191001
  Transmission Date: 20200122
  Serious: Yes (Hospitalization)
  Sender: FDA-Public Use
  Company Number: US-GW PHARMA-201909USGW3242

PATIENT

DRUGS (8)
  1. EPIDIOLEX [Suspect]
     Active Substance: CANNABIDIOL
     Indication: EPILEPSY
     Dosage: 26.31 MG/KG, 300 MILLIGRAM, BID
     Route: 048
     Dates: start: 20190808
  2. ATIVAN [Concomitant]
     Active Substance: LORAZEPAM
     Indication: SEIZURE
     Dosage: 0.5 MILLIGRAM, QD
     Route: 002
     Dates: start: 20190731
  3. DEPAKENE [VALPROATE SODIUM] [Concomitant]
     Indication: PRODUCT USED FOR UNKNOWN INDICATION
     Dosage: UNK
     Route: 065
  4. CULTURELLE [Concomitant]
     Active Substance: LACTOBACILLUS RHAMNOSUS
     Indication: PRODUCT USED FOR UNKNOWN INDICATION
     Dosage: 1 DOSAGE FORM, QD (10 BILLION CELL)
     Route: 048
  5. DEPAKENE [VALPROATE SODIUM] [Concomitant]
     Dosage: 625 MILLIGRAM, QD (250 MG QAM AND 375 MG QHS)
     Route: 065
  6. DEPAKENE [VALPROATE SODIUM] [Concomitant]
     Dosage: 250 MILLIGRAM, BID (500 MG TOTAL)
     Dates: start: 20190829
  7. MULTIVITAMIN [ASCORBIC ACID;BIOTIN;CALCIUM PANTOTHENATE;CYANOCOBALAMIN [Concomitant]
     Active Substance: VITAMINS
     Indication: PRODUCT USED FOR UNKNOWN INDICATION
     Dosage: 1 DOSAGE FORM, QD
     Route: 048
  8. TOPAMAX [Concomitant]
     Active Substance: TOPIRAMATE
     Indication: PRODUCT USED FOR UNKNOWN INDICATION
     Dosage: 25 MILLIGRAM, BID
     Route: 048

REACTIONS (8)
  - Peripheral swelling [Unknown]
  - Skin disorder [Unknown]
  - Arthralgia [Unknown]
  - Influenza [Recovered/Resolved]
  - Kyphoscoliosis [Unknown]
  - Pneumonia [Recovered/Resolved]
  - Malnutrition [Unknown]
  - Weight decreased [Unknown]

NARRATIVE: CASE EVENT DATE: 2019
